FAERS Safety Report 19459782 (Version 2)
Quarter: 2022Q3

REPORT INFORMATION
  Report Type: Spontaneous
  Country: US (occurrence: US)
  Receive Date: 20210624
  Receipt Date: 20220915
  Transmission Date: 20221027
  Serious: Yes (Other)
  Sender: FDA-Public Use
  Company Number: US-SA-SAC20210622001349

PATIENT
  Age: 51 Year
  Sex: Female

DRUGS (1)
  1. ZANTAC [Suspect]
     Active Substance: RANITIDINE HYDROCHLORIDE
     Indication: Dyspepsia
     Dosage: 150 MG, QD
     Dates: start: 201501, end: 201910

REACTIONS (4)
  - Breast cancer stage I [Unknown]
  - Ovarian cancer stage III [Unknown]
  - Uterine cancer [Unknown]
  - Cervix carcinoma stage III [Unknown]

NARRATIVE: CASE EVENT DATE: 20190601
